FAERS Safety Report 8523620-1 (Version None)
Quarter: 2012Q3

REPORT INFORMATION
  Report Type: 
  Country: None (occurrence: None)
  Receive Date: 20120709
  Receipt Date: 20120623
  Transmission Date: 20120928
  Serious: Yes (Hospitalization)
  Sender: FDA-Public Use
  Company Number: 2012AP001966

PATIENT
  Sex: Female

DRUGS (5)
  1. QUETIAPINE FUMARATE [Suspect]
     Indication: BIPOLAR DISORDER
     Dosage: 300 MG; QD, 750 MG; BID
  2. LITHIUM CARBONATE [Concomitant]
  3. VALPROATE SEMISODIUM (VALPROATE SEMISODIUM) [Suspect]
     Indication: BIPOLAR DISORDER
     Dosage: 500 MG;BID, 750 MG; BID
  4. OLANZAPINE [Concomitant]
  5. CARBIMAZOLE (CARBIMAZOLE) [Suspect]
     Indication: BIPOLAR DISORDER
     Dosage: 10 MG;BID

REACTIONS (15)
  - PSYCHOTIC DISORDER [None]
  - EMOTIONAL DISORDER [None]
  - INAPPROPRIATE AFFECT [None]
  - SEXUALLY INAPPROPRIATE BEHAVIOUR [None]
  - DISINHIBITION [None]
  - ELEVATED MOOD [None]
  - PERSECUTORY DELUSION [None]
  - EXOSTOSIS [None]
  - DYSPHAGIA [None]
  - MANIA [None]
  - MENTAL IMPAIRMENT [None]
  - AGITATION [None]
  - PRESSURE OF SPEECH [None]
  - IRRITABILITY [None]
  - RESTLESSNESS [None]
